FAERS Safety Report 6496670-7 (Version None)
Quarter: 2009Q4

REPORT INFORMATION
  Report Type: 
  Country: None (occurrence: None)
  Receive Date: 20091125
  Receipt Date: 20090723
  Transmission Date: 20100525
  Serious: Yes (Other)
  Sender: FDA-Public Use
  Company Number: 2009BH011425

PATIENT
  Sex: Male

DRUGS (26)
  1. DIANEAL [Suspect]
     Indication: PERITONEAL DIALYSIS
     Dosage: 14.5 L ; EVERY DAY ; IP
     Route: 033
     Dates: start: 20071023
  2. HEPARIN [Concomitant]
  3. EPO [Concomitant]
  4. POTASSIUM CHLORIDE [Concomitant]
  5. VANCOMYCIN [Concomitant]
  6. AMLODIPINE [Concomitant]
  7. MOTRIN [Concomitant]
  8. CALCITRIOL [Concomitant]
  9. HYDROXYZINE [Concomitant]
  10. PRILOSEC [Concomitant]
  11. PRAVACHOL [Concomitant]
  12. DULCOLAX [Concomitant]
  13. TOPROL-XL [Concomitant]
  14. RENAGEL [Concomitant]
  15. GLYBURIDE [Concomitant]
  16. VICODIN [Concomitant]
  17. COMPAZINE [Concomitant]
  18. DIALYVITE [Concomitant]
  19. OXYBUTYNIN CHLORIDE [Concomitant]
  20. ZOLOFT [Concomitant]
  21. ASPIRIN [Concomitant]
  22. FISH OIL [Concomitant]
  23. CQ10 [Concomitant]
  24. ESTER-C [Concomitant]
  25. TYLENOL (CAPLET) [Concomitant]
  26. DESYREL [Concomitant]

REACTIONS (2)
  - PERITONEAL DIALYSIS COMPLICATION [None]
  - PERITONITIS BACTERIAL [None]
